FAERS Safety Report 13769878 (Version 9)
Quarter: 2018Q2

REPORT INFORMATION
  Report Type: Report from Study
  Country: CA (occurrence: CA)
  Receive Date: 20170719
  Receipt Date: 20180626
  Transmission Date: 20180711
  Serious: Yes (Hospitalization, Other)
  Sender: FDA-Public Use
  Company Number: CA-BRISTOL-MYERS SQUIBB COMPANY-BMS-2017-036040

PATIENT
  Age: 68 Year
  Sex: Male

DRUGS (2)
  1. ABATACEPT [Suspect]
     Active Substance: ABATACEPT
     Indication: RHEUMATOID ARTHRITIS
     Dosage: 750 MG, QMO
     Route: 042
     Dates: start: 20090730
  2. ABATACEPT [Suspect]
     Active Substance: ABATACEPT
     Indication: PRODUCT USED FOR UNKNOWN INDICATION
     Dosage: 500 MG, QMO
     Route: 042

REACTIONS (12)
  - Prostatic disorder [Unknown]
  - Respiratory tract congestion [Recovering/Resolving]
  - Musculoskeletal pain [Not Recovered/Not Resolved]
  - Arterial therapeutic procedure [Unknown]
  - Nasopharyngitis [Recovering/Resolving]
  - Cough [Recovering/Resolving]
  - Arthralgia [Not Recovered/Not Resolved]
  - Rhinorrhoea [Unknown]
  - Angina pectoris [Unknown]
  - Transient ischaemic attack [Recovered/Resolved]
  - Thrombosis [Unknown]
  - Neoplasm [Unknown]

NARRATIVE: CASE EVENT DATE: 20170301
